FAERS Safety Report 8180185-4 (Version None)
Quarter: 2012Q1

REPORT INFORMATION
  Report Type: 
  Country: None (occurrence: None)
  Receive Date: 20120302
  Receipt Date: 20120222
  Transmission Date: 20120608
  Serious: Yes (Hospitalization)
  Sender: FDA-Public Use
  Company Number: US-BAYER-2011-082098

PATIENT
  Age: 23 Year
  Sex: Female
  Weight: 91 kg

DRUGS (10)
  1. MULTI-VITAMINS [Concomitant]
  2. ORTHO EVRA [Concomitant]
  3. FLUCONAZOLE [Concomitant]
  4. CIPROFLOXACIN [Concomitant]
  5. YAZ [Suspect]
     Dosage: UNK
     Dates: start: 20060101, end: 20070101
  6. YASMIN [Suspect]
     Dosage: UNK
     Dates: start: 20060101, end: 20070101
  7. ASCORBIC ACID [Concomitant]
  8. CLONAZEPAM [Concomitant]
  9. PREDNISONE TAB [Concomitant]
  10. ORTHO TRI-CYCLEN [Concomitant]

REACTIONS (2)
  - PAIN [None]
  - DEEP VEIN THROMBOSIS [None]
